FAERS Safety Report 8443982-3 (Version None)
Quarter: 2012Q2

REPORT INFORMATION
  Report Type: 
  Country: None (occurrence: None)
  Receive Date: 20120618
  Receipt Date: 20120611
  Transmission Date: 20120825
  Serious: Yes (Death, Hospitalization, Other)
  Sender: FDA-Public Use
  Company Number: PHHY2012JP051253

PATIENT
  Sex: Male
  Weight: 72 kg

DRUGS (7)
  1. ALOSENN [Concomitant]
     Dosage: 0.5 G, UNK
     Route: 048
     Dates: end: 20100913
  2. GLAKAY [Concomitant]
     Indication: MYELODYSPLASTIC SYNDROME
     Dosage: 45 MG, UNK
     Route: 048
     Dates: start: 20081105, end: 20100913
  3. EXJADE [Suspect]
     Indication: IRON OVERLOAD
     Dosage: 500 MG, DAILY
     Route: 048
     Dates: start: 20100304, end: 20100309
  4. EXJADE [Suspect]
     Dosage: 1000 MG, DAILY
     Route: 048
     Dates: start: 20100310, end: 20100409
  5. SOLU-CORTEF [Concomitant]
     Indication: PROPHYLAXIS
     Dosage: 100 MG, UNK
     Dates: start: 20100817, end: 20100913
  6. EXJADE [Suspect]
     Dosage: 500 MG, DAILY
     Route: 048
     Dates: start: 20100416, end: 20100416
  7. CHLOR-TRIMETON [Concomitant]
     Indication: PROPHYLAXIS
     Dosage: 10 MG, UNK
     Dates: start: 20100817, end: 20100913

REACTIONS (8)
  - WHITE BLOOD CELL COUNT DECREASED [None]
  - INTERSTITIAL LUNG DISEASE [None]
  - PYREXIA [None]
  - PLATELET COUNT DECREASED [None]
  - DISEASE PROGRESSION [None]
  - AGRANULOCYTOSIS [None]
  - LYMPHOCYTE PERCENTAGE INCREASED [None]
  - MYELODYSPLASTIC SYNDROME [None]
